FAERS Safety Report 7334182-9 (Version None)
Quarter: 2011Q1

REPORT INFORMATION
  Report Type: 
  Country: None (occurrence: None)
  Receive Date: 20110307
  Receipt Date: 20100104
  Transmission Date: 20110831
  Serious: No
  Sender: FDA-Public Use
  Company Number: US-BAYER-201010444NA

PATIENT
  Sex: Female

DRUGS (3)
  1. OXYCODONE [Concomitant]
     Indication: PROCEDURAL PAIN
  2. MIRENA [Suspect]
     Indication: CONTRACEPTION
     Dosage: 20 ?G/D, CONT
     Route: 015
     Dates: start: 20091231
  3. MORPHINE SULFATE [Concomitant]
     Indication: PROCEDURAL PAIN

REACTIONS (3)
  - ABDOMINAL PAIN LOWER [None]
  - PROCEDURAL PAIN [None]
  - DYSPEPSIA [None]
